FAERS Safety Report 5929650-8 (Version None)
Quarter: 2008Q4

REPORT INFORMATION
  Report Type: 
  Country: None (occurrence: None)
  Receive Date: 20081024
  Receipt Date: 20081013
  Transmission Date: 20090506
  Serious: Yes (Hospitalization)
  Sender: FDA-Public Use
  Company Number: US-WYE-H01827207

PATIENT
  Age: 6 Year
  Sex: Male

DRUGS (2)
  1. DEXTROMETHORPHAN HYDROBROMIDE [Suspect]
     Dosage: ESTIMATED AMOUNT INGESTED WAS 40 MG/KG
     Route: 065
  2. SERTRALINE [Suspect]
     Dosage: UNKNOWN
     Route: 065

REACTIONS (5)
  - ACCIDENTAL DRUG INTAKE BY CHILD [None]
  - ACCIDENTAL OVERDOSE [None]
  - LETHARGY [None]
  - MYDRIASIS [None]
  - SEROTONIN SYNDROME [None]
